FAERS Safety Report 26023085 (Version 2)
Quarter: 2025Q4

REPORT INFORMATION
  Report Type: Report from Study
  Country: CA (occurrence: CA)
  Receive Date: 20251110
  Receipt Date: 20251119
  Transmission Date: 20260117
  Serious: Yes (Other)
  Sender: ABBVIE
  Company Number: CA-ABBVIE-6536172

PATIENT
  Age: 57 Year
  Sex: Male

DRUGS (1)
  1. RINVOQ [Suspect]
     Active Substance: UPADACITINIB
     Indication: Crohn^s disease
     Dosage: FORM STRENGTH:30 MG FORM STRENGTH  PROLONGED RELEASE TABLET
     Route: 048

REACTIONS (4)
  - Nephrectomy [Unknown]
  - Swelling [Unknown]
  - Pseudopolyposis [Unknown]
  - Colitis [Unknown]

NARRATIVE: CASE EVENT DATE: 20240101
